FAERS Safety Report 25198639 (Version 1)
Quarter: 2025Q2

REPORT INFORMATION
  Report Type: Spontaneous
  Country: US (occurrence: None)
  Receive Date: 20250411
  Receipt Date: 20250411
  Transmission Date: 20250716
  Serious: No
  Sender: FDA-CTU
  Company Number: None

PATIENT

DRUGS (3)
  1. MOTEGRITY [Suspect]
     Active Substance: PRUCALOPRIDE SUCCINATE
  2. TRULANCE [Concomitant]
     Active Substance: PLECANATIDE
  3. LINZESS [Suspect]
     Active Substance: LINACLOTIDE

REACTIONS (3)
  - Drug ineffective [None]
  - Diarrhoea [None]
  - Abdominal discomfort [None]
